FAERS Safety Report 6097552-5 (Version None)
Quarter: 2009Q1

REPORT INFORMATION
  Report Type: 
  Country: None (occurrence: None)
  Receive Date: 20090227
  Receipt Date: 20090107
  Transmission Date: 20090719
  Serious: No
  Sender: FDA-Public Use
  Company Number: A0754081A

PATIENT
  Sex: Female

DRUGS (2)
  1. IMITREX [Suspect]
     Dosage: 4MG UNKNOWN
     Route: 058
  2. GSK AUTOINJECTOR [Suspect]
     Route: 058

REACTIONS (3)
  - INJECTION SITE PAIN [None]
  - INJECTION SITE REACTION [None]
  - PRODUCT QUALITY ISSUE [None]
